FAERS Safety Report 4335477-3 (Version None)
Quarter: 2004Q1

REPORT INFORMATION
  Report Type: 
  Country: None (occurrence: None)
  Receive Date: 20040330
  Receipt Date: 20040209
  Transmission Date: 20041129
  Serious: No
  Sender: FDA-Public Use
  Company Number: 27773

PATIENT
  Age: 72 Year
  Sex: Male
  Weight: 112.4921 kg

DRUGS (1)
  1. TRAVATAN [Suspect]
     Indication: OCULAR HYPERTENSION

REACTIONS (1)
  - OCULAR HYPERAEMIA [None]
